FAERS Safety Report 7083803-7 (Version None)
Quarter: 2010Q4

REPORT INFORMATION
  Report Type: 
  Country: None (occurrence: None)
  Receive Date: 20101104
  Receipt Date: 20101025
  Transmission Date: 20110411
  Serious: Yes (Hospitalization)
  Sender: FDA-Public Use
  Company Number: FR-WYE-H18506310

PATIENT
  Age: 79 Year
  Sex: Female

DRUGS (6)
  1. CORDARONE [Suspect]
     Indication: ATRIAL FIBRILLATION
     Route: 048
     Dates: start: 20100430
  2. SPIRONOLACTONE [Suspect]
     Dosage: DOSE NOT PROVIDED
     Dates: end: 20100515
  3. LEVOTHYROXINE SODIUM [Suspect]
     Indication: HYPOTHYROIDISM
     Route: 048
  4. ESOMEPRAZOLE [Suspect]
     Route: 048
     Dates: end: 20100522
  5. LASIX [Suspect]
     Indication: HYPERTENSION
     Dosage: DOSE NOT PROVIDED
     Route: 048
     Dates: start: 20100430, end: 20100515
  6. FLUDEX [Suspect]
     Indication: HYPERTENSION
     Dosage: DOSE NOT PROVIDED
     Route: 048
     Dates: end: 20100430

REACTIONS (3)
  - HYPOCHLORAEMIA [None]
  - HYPONATRAEMIA [None]
  - RENAL IMPAIRMENT [None]
